FAERS Safety Report 22045544 (Version 1)
Quarter: 2023Q1

REPORT INFORMATION
  Report Type: Spontaneous
  Country: US (occurrence: None)
  Receive Date: 20230227
  Receipt Date: 20230227
  Transmission Date: 20230418
  Serious: Yes (Hospitalization)
  Sender: FDA-Public Use
  Company Number: None

PATIENT
  Age: 43 Year
  Sex: Female

DRUGS (1)
  1. PROGESTERONE [Suspect]
     Active Substance: PROGESTERONE
     Indication: Adenomyosis
     Route: 030
     Dates: start: 202212

REACTIONS (2)
  - Kidney infection [None]
  - Urinary tract infection [None]

NARRATIVE: CASE EVENT DATE: 20230206
